FAERS Safety Report 5779576-8 (Version None)
Quarter: 2008Q2

REPORT INFORMATION
  Report Type: 
  Country: None (occurrence: None)
  Receive Date: 20080617
  Receipt Date: 20080606
  Transmission Date: 20081010
  Serious: Yes (Life-Threatening, Other)
  Sender: FDA-Public Use
  Company Number: GXKR2008GB05194

PATIENT
  Age: 35 Year
  Sex: Female

DRUGS (3)
  1. METRONIDAZOLE [Suspect]
     Indication: ORAL INFECTION
     Dosage: 400 MG, TID
  2. LAMOTRIGINE [Suspect]
     Indication: EPILEPSY
     Dosage: 100 MG, 5QD, ORAL
     Route: 048
  3. TEGRETOL [Suspect]
     Indication: EPILEPSY
     Dosage: 400 MG, BID, ORAL
     Route: 048

REACTIONS (2)
  - CONVULSION [None]
  - DEPRESSED LEVEL OF CONSCIOUSNESS [None]
